FAERS Safety Report 12340049 (Version 1)
Quarter: 2016Q2

REPORT INFORMATION
  Report Type: Spontaneous
  Country: US (occurrence: US)
  Receive Date: 20160506
  Receipt Date: 20160506
  Transmission Date: 20160815
  Serious: Yes (Other)
  Sender: FDA-Public Use
  Company Number: US-ACCORD-040146

PATIENT
  Age: 58 Year
  Sex: Male
  Weight: 54.43 kg

DRUGS (3)
  1. MYFORTIC [Concomitant]
     Active Substance: MYCOPHENOLATE SODIUM
     Indication: RENAL TRANSPLANT
  2. PREDNISONE/PREDNISONE ACETATE [Concomitant]
     Indication: RENAL TRANSPLANT
  3. TACROLIMUS ACCORD [Suspect]
     Active Substance: TACROLIMUS
     Indication: RENAL TRANSPLANT
     Dosage: STRENGTH 1 MG
     Route: 048
     Dates: end: 201501

REACTIONS (7)
  - Weight increased [Recovered/Resolved]
  - Reaction to drug excipients [Recovered/Resolved]
  - Malaise [Recovered/Resolved]
  - Skin reaction [Recovered/Resolved]
  - Product substitution issue [Unknown]
  - Weight decreased [Recovered/Resolved]
  - Onychomadesis [Recovered/Resolved]

NARRATIVE: CASE EVENT DATE: 2014
